FAERS Safety Report 20626228 (Version 1)
Quarter: 2022Q1

REPORT INFORMATION
  Report Type: Spontaneous
  Country: US (occurrence: None)
  Receive Date: 20220323
  Receipt Date: 20220323
  Transmission Date: 20220424
  Serious: No
  Sender: FDA-Public Use
  Company Number: US-ROCHE-2810442

PATIENT
  Age: 43 Year
  Sex: Female

DRUGS (1)
  1. ERIVEDGE [Suspect]
     Active Substance: VISMODEGIB
     Indication: Congenital anomaly
     Route: 048
     Dates: start: 202009

REACTIONS (3)
  - Alopecia [Unknown]
  - Ageusia [Unknown]
  - Off label use [Unknown]

NARRATIVE: CASE EVENT DATE: 20200901
